FAERS Safety Report 24375097 (Version 1)
Quarter: 2024Q3

REPORT INFORMATION
  Report Type: Spontaneous
  Country: US (occurrence: US)
  Receive Date: 20240928
  Receipt Date: 20240928
  Transmission Date: 20241016
  Serious: Yes (Hospitalization, Other)
  Sender: JOHNSON AND JOHNSON
  Company Number: US-JNJFOC-20240959068

PATIENT
  Age: 68 Year
  Sex: Female

DRUGS (23)
  1. OPSUMIT [Suspect]
     Active Substance: MACITENTAN
     Indication: Product used for unknown indication
     Route: 048
  2. ORENITRAM [Suspect]
     Active Substance: TREPROSTINIL
     Indication: Pulmonary arterial hypertension
     Route: 048
  3. ORENITRAM [Suspect]
     Active Substance: TREPROSTINIL
     Route: 048
  4. TREPROSTINIL [Suspect]
     Active Substance: TREPROSTINIL
     Indication: Pulmonary arterial hypertension
     Route: 048
     Dates: start: 2024, end: 2024
  5. TREPROSTINIL [Suspect]
     Active Substance: TREPROSTINIL
     Route: 048
     Dates: start: 20240730, end: 20240816
  6. ADEMPAS [Suspect]
     Active Substance: RIOCIGUAT
     Indication: Product used for unknown indication
     Route: 065
  7. FULVESTRANT [Concomitant]
     Active Substance: FULVESTRANT
  8. SYNTHROID [Concomitant]
     Active Substance: LEVOTHYROXINE SODIUM
  9. JARDIANCE [Concomitant]
     Active Substance: EMPAGLIFLOZIN
  10. TRELEGY ELLIPTA [Concomitant]
     Active Substance: FLUTICASONE FUROATE\UMECLIDINIUM BROMIDE\VILANTEROL TRIFENATATE
  11. LASIX [Concomitant]
     Active Substance: FUROSEMIDE
  12. IBRANCE [Concomitant]
     Active Substance: PALBOCICLIB
  13. ROSUVASTATIN CALCIUM [Concomitant]
     Active Substance: ROSUVASTATIN CALCIUM
  14. ELIQUIS [Concomitant]
     Active Substance: APIXABAN
  15. METOPROLOL SUCCINATE [Concomitant]
     Active Substance: METOPROLOL SUCCINATE
  16. VENTOLIN HFA [Concomitant]
     Active Substance: ALBUTEROL SULFATE
  17. TRULICITY [Concomitant]
     Active Substance: DULAGLUTIDE
  18. OXYGEN [Concomitant]
     Active Substance: OXYGEN
  19. OXYGEN [Concomitant]
     Active Substance: OXYGEN
  20. RECLAST [Concomitant]
     Active Substance: ZOLEDRONIC ACID
  21. D3 5000 [Concomitant]
  22. MIDODRINE [Concomitant]
     Active Substance: MIDODRINE
  23. TORSEMIDE [Concomitant]
     Active Substance: TORSEMIDE

REACTIONS (6)
  - Dyspnoea exertional [Not Recovered/Not Resolved]
  - Cardiac flutter [Not Recovered/Not Resolved]
  - Headache [Not Recovered/Not Resolved]
  - Nausea [Unknown]
  - Vomiting [Not Recovered/Not Resolved]
  - Peripheral swelling [Not Recovered/Not Resolved]

NARRATIVE: CASE EVENT DATE: 20240101
